FAERS Safety Report 5225091-X (Version None)
Quarter: 2007Q1

REPORT INFORMATION
  Report Type: 
  Country: None (occurrence: None)
  Receive Date: 20070129
  Receipt Date: 20070119
  Transmission Date: 20070707
  Serious: Yes (Hospitalization)
  Sender: FDA-Public Use
  Company Number: TAP2006Q00363

PATIENT
  Age: 63 Year
  Sex: Male

DRUGS (23)
  1. LUPRON DEPOT-4 [Suspect]
     Indication: PROSTATE CANCER
     Dosage: 30 MG, ONCE, INJECTION
     Dates: start: 20051116, end: 20051116
  2. BISOPROLOL FUMARATE [Concomitant]
  3. NITRO-DUR [Concomitant]
  4. ASAPHEN (ACETYLSALICYLIC ACID) [Concomitant]
  5. DOXAZOSIN (DOXAZOSIN) [Concomitant]
  6. ARICEPT [Concomitant]
  7. AMITRIPTYLINE HCL [Concomitant]
  8. CELLCEPT [Concomitant]
  9. APO-SULFATRIM-DS (BACTRIM/00086101/) [Concomitant]
  10. NORVASC [Concomitant]
  11. NASONEX [Concomitant]
  12. GEN-TEAL 0.3% (HYPROMELLOSE) [Concomitant]
  13. NEORAL [Concomitant]
  14. CASODEX [Concomitant]
  15. NOVO METOPROLOL (METOPROLOL) [Concomitant]
  16. COLCHICINE (COLCHICINE) [Concomitant]
  17. APO PREDNISONE (PREDNISONE) [Concomitant]
  18. APO-ALLOPURINOL (ALLOPURINOL) [Concomitant]
  19. ONE ALPHA (ALFACALCIDOL) [Concomitant]
  20. LIPITOR [Concomitant]
  21. APO-FUROSEMIDE (FUROSEMIDE) [Concomitant]
  22. K-DUR 10 [Concomitant]
  23. CALCIUM (CALCIUM) [Concomitant]

REACTIONS (8)
  - BLOOD CREATININE INCREASED [None]
  - CARDIAC VALVE DISEASE [None]
  - CONVULSION [None]
  - HEART RATE IRREGULAR [None]
  - KIDNEY INFECTION [None]
  - KIDNEY TRANSPLANT REJECTION [None]
  - OBSTRUCTION [None]
  - RENAL IMPAIRMENT [None]
